FAERS Safety Report 20714296 (Version 2)
Quarter: 2022Q2

REPORT INFORMATION
  Report Type: Spontaneous
  Country: US (occurrence: US)
  Receive Date: 20220415
  Receipt Date: 20220513
  Transmission Date: 20220721
  Serious: Yes (Other)
  Sender: FDA-Public Use
  Company Number: US-MYLANLABS-2022M1026504

PATIENT
  Sex: Female
  Weight: 67.59 kg

DRUGS (1)
  1. EPIPEN [Suspect]
     Active Substance: EPINEPHRINE
     Indication: Food allergy
     Dosage: UNK
     Route: 030
     Dates: start: 2017

REACTIONS (3)
  - Device failure [Unknown]
  - Drug ineffective [Recovered/Resolved]
  - Product expiration date issue [Unknown]
